FAERS Safety Report 9338410 (Version 1)
Quarter: 2013Q2

REPORT INFORMATION
  Report Type: Spontaneous
  Country: US (occurrence: US)
  Receive Date: 20130610
  Receipt Date: 20130610
  Transmission Date: 20140414
  Serious: Yes (Death)
  Sender: FDA-Public Use
  Company Number: US-ELI_LILLY_AND_COMPANY-US201109006404

PATIENT
  Age: 80 Year
  Sex: Male

DRUGS (3)
  1. FORTEO [Suspect]
     Indication: OSTEOPOROSIS
     Dosage: 20 UG, QD
     Route: 065
  2. FORTEO [Suspect]
     Dosage: 20 UG, QOD
     Route: 065
  3. FORTEO [Suspect]
     Dosage: UNK
     Dates: start: 201106

REACTIONS (3)
  - Death [Fatal]
  - Injection site bruising [Recovered/Resolved]
  - Blood calcium increased [Not Recovered/Not Resolved]
